FAERS Safety Report 19257691 (Version 1)
Quarter: 2021Q2

REPORT INFORMATION
  Report Type: Spontaneous
  Country: US (occurrence: US)
  Receive Date: 20210514
  Receipt Date: 20210514
  Transmission Date: 20210717
  Serious: No
  Sender: FDA-Public Use
  Company Number: US-IGSA-BIG0014390

PATIENT
  Age: 20 Year
  Sex: Male
  Weight: 102 kg

DRUGS (6)
  1. GAMUNEX?C [Suspect]
     Active Substance: HUMAN IMMUNOGLOBULIN G
     Dosage: UNK GRAM, TOTAL
     Route: 042
     Dates: start: 20210401, end: 20210401
  2. GAMUNEX?C [Suspect]
     Active Substance: HUMAN IMMUNOGLOBULIN G
     Dosage: 40 GRAM, TOTAL
     Route: 042
     Dates: start: 20210427, end: 20210427
  3. GAMUNEX?C [Suspect]
     Active Substance: HUMAN IMMUNOGLOBULIN G
     Dosage: UNK GRAM, TOTAL
     Route: 042
     Dates: start: 20210427, end: 20210427
  4. GAMUNEX?C [Suspect]
     Active Substance: HUMAN IMMUNOGLOBULIN G
     Dosage: UNK, Q.3WK.
     Route: 042
     Dates: start: 2013
  5. GAMUNEX?C [Suspect]
     Active Substance: HUMAN IMMUNOGLOBULIN G
     Indication: 22Q11.2 DELETION SYNDROME
     Dosage: 40 GRAM, TOTAL
     Route: 042
     Dates: start: 20210401, end: 20210401
  6. BENADRYL [Concomitant]
     Active Substance: DIPHENHYDRAMINE HYDROCHLORIDE
     Indication: PREMEDICATION
     Dosage: 25 MILLIGRAM
     Dates: start: 20210401

REACTIONS (7)
  - Rash vesicular [Recovered/Resolved]
  - Fatigue [Recovered/Resolved]
  - Pruritus [Recovered/Resolved]
  - Somnolence [Recovered/Resolved]
  - Rash [Recovered/Resolved]
  - Hypersensitivity [Recovered/Resolved]
  - Oropharyngeal pain [Recovered/Resolved]

NARRATIVE: CASE EVENT DATE: 20210401
